FAERS Safety Report 5744053-7 (Version None)
Quarter: 2008Q2

REPORT INFORMATION
  Report Type: 
  Country: None (occurrence: None)
  Receive Date: 20080516
  Receipt Date: 20080516
  Transmission Date: 20081010
  Serious: Yes (Death)
  Sender: FDA-Public Use
  Company Number: None

PATIENT
  Age: 11 Month
  Sex: Male
  Weight: 6.6 kg

DRUGS (6)
  1. RETROVIR [Suspect]
     Indication: HIV INFECTION
     Dosage: 60 MILLIGRAMS BID PO
     Route: 048
     Dates: start: 20071016, end: 20071211
  2. EPIVIR [Suspect]
     Indication: HIV INFECTION
     Dosage: 20 MILLIGRAMS BID PO
     Route: 048
     Dates: start: 20071016, end: 20071211
  3. VIRAMUNE [Suspect]
     Indication: HIV INFECTION
     Dosage: 50 MILLIGRAMS BID PO
     Route: 048
     Dates: start: 20071016, end: 20071211
  4. COTRIM [Concomitant]
  5. FERRODROPS [Concomitant]
  6. FOLATE [Concomitant]

REACTIONS (1)
  - GASTROENTERITIS [None]
